FAERS Safety Report 8720158 (Version 2)
Quarter: 2012Q4

REPORT INFORMATION
  Report Type: Report from Study
  Country: US (occurrence: US)
  Receive Date: 20120813
  Receipt Date: 20121005
  Transmission Date: 20130627
  Serious: Yes (Death, Hospitalization)
  Sender: FDA-Public Use
  Company Number: US-PURDUE-USA-2012-0091100

PATIENT
  Age: 56 Year
  Sex: Female

DRUGS (2)
  1. OXYCONTIN (NDA 22-272) [Suspect]
     Indication: PRODUCT USED FOR UNKNOWN INDICATION
     Dosage: 80 mg, tid
     Route: 048
  2. OXYCONTIN (NDA 22-272) [Suspect]
     Dosage: 20 mg, tid
     Route: 048

REACTIONS (2)
  - Myocardial infarction [Fatal]
  - Pneumonia [Unknown]
